FAERS Safety Report 9124006 (Version 1)
Quarter: 2013Q1

REPORT INFORMATION
  Report Type: Spontaneous
  Country: DE (occurrence: DE)
  Receive Date: 20130116
  Receipt Date: 20130116
  Transmission Date: 20140127
  Serious: Yes (Other)
  Sender: FDA-Public Use
  Company Number: DE-009507513-1301DEU003386

PATIENT
  Sex: Female
  Weight: 3.5 kg

DRUGS (6)
  1. MIRTAZAPINE [Suspect]
     Indication: DEPRESSION
     Dosage: 30 MG, QD
     Route: 064
     Dates: start: 20111103, end: 20120817
  2. FOLIO [Concomitant]
     Indication: PROPHYLAXIS OF NEURAL TUBE DEFECT
     Dosage: 0.4 MG, QD
     Route: 064
     Dates: end: 20120817
  3. L-THYROXIN [Concomitant]
     Indication: HYPOTHYROIDISM
     Dosage: 100 MICROGRAM, QD
     Route: 064
     Dates: start: 20111103, end: 20120817
  4. CHLORPROTHIXENE [Concomitant]
     Indication: TENSION
     Dosage: 50 MG, QD
     Route: 064
  5. VALPROAT [Concomitant]
     Indication: BORDERLINE PERSONALITY DISORDER
     Dosage: 500 MG, QD
     Route: 064
  6. CITALOPRAM [Concomitant]
     Indication: DEPRESSION
     Dosage: 40 MG, QD
     Route: 064

REACTIONS (2)
  - Apnoea neonatal [Recovered/Resolved]
  - Foetal exposure during pregnancy [Unknown]
